FAERS Safety Report 6162220-8 (Version None)
Quarter: 2009Q2

REPORT INFORMATION
  Report Type: 
  Country: None (occurrence: None)
  Receive Date: 20090417
  Receipt Date: 20090406
  Transmission Date: 20091009
  Serious: Yes (Hospitalization)
  Sender: FDA-Public Use
  Company Number: 2009VX000606

PATIENT
  Age: 26 Year
  Sex: Female

DRUGS (3)
  1. DIAZEPAM [Suspect]
     Indication: ANXIETY
     Dosage: 10 MG; X1; IV
     Route: 042
  2. DIAZEPAM [Suspect]
     Indication: HEADACHE
     Dosage: 10 MG; X1; IV
     Route: 042
  3. ERGOTAMINE [Concomitant]

REACTIONS (13)
  - ARM AMPUTATION [None]
  - GANGRENE [None]
  - INCORRECT ROUTE OF DRUG ADMINISTRATION [None]
  - INFLAMMATION [None]
  - INFUSION SITE NECROSIS [None]
  - INFUSION SITE PAIN [None]
  - PAIN [None]
  - PALLOR [None]
  - PARAESTHESIA [None]
  - PULSE ABSENT [None]
  - SKIN DISCOLOURATION [None]
  - SWELLING [None]
  - THROMBOSIS [None]
